FAERS Safety Report 9747207 (Version 2)
Quarter: 2013Q4

REPORT INFORMATION
  Report Type: Spontaneous
  Country: AT (occurrence: AT)
  Receive Date: 20131212
  Receipt Date: 20131212
  Transmission Date: 20140711
  Serious: Yes (Other)
  Sender: FDA-Public Use
  Company Number: AT-AMGEN-AUTSP2013076139

PATIENT
  Age: 83 Year
  Sex: Female

DRUGS (1)
  1. PROLIA [Suspect]
     Indication: PRODUCT USED FOR UNKNOWN INDICATION
     Dosage: UNK
     Route: 065
     Dates: start: 201306

REACTIONS (7)
  - Hypophagia [Unknown]
  - Malnutrition [Unknown]
  - Tooth loss [Unknown]
  - Loose tooth [Unknown]
  - Mastication disorder [Unknown]
  - Weight decreased [Unknown]
  - Tooth disorder [Unknown]
